FAERS Safety Report 24608547 (Version 1)
Quarter: 2024Q4

REPORT INFORMATION
  Report Type: Spontaneous
  Country: CA (occurrence: CA)
  Receive Date: 20241112
  Receipt Date: 20241112
  Transmission Date: 20250114
  Serious: Yes (Hospitalization)
  Sender: TEVA
  Company Number: CA-TEVA-VS-3261799

PATIENT
  Age: 46 Year
  Sex: Male

DRUGS (3)
  1. ROSUVASTATIN [Suspect]
     Active Substance: ROSUVASTATIN
     Indication: Dyslipidaemia
     Dosage: DOSE FORM: NOT SPECIFIED
     Route: 065
  2. LITHIUM CARBONATE [Suspect]
     Active Substance: LITHIUM CARBONATE
     Indication: Mania
     Dosage: DOSE FORM: NOT SPECIFIED
     Route: 065
  3. PSYLLIUM HUSK [Suspect]
     Active Substance: PSYLLIUM HUSK
     Indication: Decreased appetite
     Dosage: DOSE FORM: NOT SPECIFIED?PSYLLIUM HUSK USP
     Route: 065

REACTIONS (3)
  - Abnormal behaviour [Recovering/Resolving]
  - Job change [Recovering/Resolving]
  - Herbal interaction [Recovering/Resolving]
